FAERS Safety Report 21407726 (Version 2)
Quarter: 2022Q4

REPORT INFORMATION
  Report Type: Report from Study
  Country: CA (occurrence: CA)
  Receive Date: 20221004
  Receipt Date: 20221101
  Transmission Date: 20230112
  Serious: Yes (Death, Hospitalization, Other)
  Sender: FDA-Public Use
  Company Number: CA-MYLANLABS-2022M1110904

PATIENT
  Sex: Female
  Weight: 71.9 kg

DRUGS (1)
  1. OGIVRI [Suspect]
     Active Substance: TRASTUZUMAB-DKST
     Indication: Breast cancer metastatic
     Dosage: 440 MILLIGRAM, 3XW
     Route: 042
     Dates: start: 20220901

REACTIONS (2)
  - Death [Fatal]
  - Hospitalisation [Unknown]
